FAERS Safety Report 10289584 (Version 1)
Quarter: 2014Q3

REPORT INFORMATION
  Report Type: Spontaneous
  Country: US (occurrence: None)
  Receive Date: 20140707
  Receipt Date: 20140707
  Transmission Date: 20150326
  Serious: Yes (Life-Threatening, Hospitalization)
  Sender: FDA-Public Use
  Company Number: None

PATIENT

DRUGS (1)
  1. VIVITROL [Suspect]
     Active Substance: NALTREXONE
     Indication: DEPENDENCE
     Dosage: 1 INJECTION ?

REACTIONS (3)
  - Aggression [None]
  - Personality change [None]
  - Suicidal ideation [None]

NARRATIVE: CASE EVENT DATE: 20140701
